FAERS Safety Report 5776492-2 (Version None)
Quarter: 2008Q2

REPORT INFORMATION
  Report Type: 
  Country: None (occurrence: None)
  Receive Date: 20080618
  Receipt Date: 20080611
  Transmission Date: 20081010
  Serious: Yes (Hospitalization, Other)
  Sender: FDA-Public Use
  Company Number: JP-ELI_LILLY_AND_COMPANY-JP200705002954

PATIENT
  Sex: Female
  Weight: 51.6 kg

DRUGS (6)
  1. RALOXIFENE HYDROCHLORIDE [Suspect]
     Indication: OSTEOPOROSIS POSTMENOPAUSAL
     Dosage: 60 MG, DAILY (1/D)
     Route: 048
     Dates: start: 20050419, end: 20070211
  2. RALOXIFENE HYDROCHLORIDE [Suspect]
     Dosage: 60 MG, DAILY (1/D)
     Route: 048
     Dates: start: 20070511, end: 20071210
  3. RALOXIFENE HYDROCHLORIDE [Suspect]
     Dosage: 60 MG, DAILY (1/D)
     Route: 048
     Dates: start: 20080122
  4. ALFAROL [Concomitant]
     Indication: OSTEOPOROSIS POSTMENOPAUSAL
     Dosage: 1 UG, AS NEEDED
     Route: 048
     Dates: start: 20050419, end: 20070211
  5. ALFAROL [Concomitant]
     Dosage: 1 UG, DAILY (1/D)
     Route: 048
     Dates: start: 20070511, end: 20071210
  6. ALFAROL [Concomitant]
     Dosage: 1 UG, DAILY (1/D)
     Route: 048
     Dates: start: 20080122

REACTIONS (3)
  - GALLBLADDER PERFORATION [None]
  - PERITONITIS [None]
  - SPINAL COMPRESSION FRACTURE [None]
